FAERS Safety Report 16637339 (Version 1)
Quarter: 2019Q3

REPORT INFORMATION
  Report Type: Spontaneous
  Country: US (occurrence: US)
  Receive Date: 20190614
  Receipt Date: 20190614
  Transmission Date: 20191004
  Serious: No
  Sender: FDA-Public Use
  Company Number: None

PATIENT
  Age: 29 Year
  Sex: Female
  Weight: 56.7 kg

DRUGS (4)
  1. HYDROXYPROGESTERONE CAPROATE / 250MG/ML [Suspect]
     Active Substance: HYDROXYPROGESTERONE CAPROATE
     Indication: PROPHYLAXIS
     Route: 030
     Dates: start: 20190425
  2. HYDROXYPROGESTERONE CAPROATE / 250MG/ML [Suspect]
     Active Substance: HYDROXYPROGESTERONE CAPROATE
     Indication: PROPHYLAXIS
     Route: 030
     Dates: start: 20190523
  3. HYDROXYPROGESTERONE CAPROATE / 250MG/ML [Suspect]
     Active Substance: HYDROXYPROGESTERONE CAPROATE
     Indication: PREMATURE LABOUR
     Route: 030
     Dates: start: 20190425
  4. HYDROXYPROGESTERONE CAPROATE / 250MG/ML [Suspect]
     Active Substance: HYDROXYPROGESTERONE CAPROATE
     Indication: PREMATURE LABOUR
     Route: 030
     Dates: start: 20190523

REACTIONS (1)
  - Rash [None]

NARRATIVE: CASE EVENT DATE: 20190425
